FAERS Safety Report 21476091 (Version 1)
Quarter: 2022Q4

REPORT INFORMATION
  Report Type: Spontaneous
  Country: US (occurrence: US)
  Receive Date: 20221019
  Receipt Date: 20221019
  Transmission Date: 20230112
  Serious: No
  Sender: FDA-Public Use
  Company Number: US-CELLTRION INC.-2021US015699

PATIENT

DRUGS (1)
  1. INFLECTRA [Suspect]
     Active Substance: INFLIXIMAB-DYYB
     Indication: Hidradenitis
     Dosage: 100 MG
     Route: 065

REACTIONS (5)
  - Condition aggravated [Unknown]
  - Poor venous access [Unknown]
  - Product supply issue [Unknown]
  - Drug dose omission by device [Unknown]
  - Off label use [Unknown]
